FAERS Safety Report 4351854-9 (Version None)
Quarter: 2004Q2

REPORT INFORMATION
  Report Type: 
  Country: None (occurrence: None)
  Receive Date: 20040428
  Receipt Date: 20040416
  Transmission Date: 20050107
  Serious: Yes (Hospitalization)
  Sender: FDA-Public Use
  Company Number: S04-USA-02239-01

PATIENT
  Age: 39 Year
  Sex: Female

DRUGS (5)
  1. LEXAPRO [Suspect]
     Indication: DEPRESSION
     Dosage: 30 MG PRN PO
     Route: 048
     Dates: end: 20040401
  2. LEXAPRO [Suspect]
     Indication: DEPRESSION
     Dosage: 40 MG PRN PO
     Route: 048
     Dates: end: 20040401
  3. LEXAPRO [Suspect]
     Indication: DEPRESSION
     Dosage: 20 MG QD PO
     Route: 048
     Dates: start: 20040410
  4. LORCET-HD [Concomitant]
  5. SOMA [Concomitant]

REACTIONS (8)
  - ABNORMAL BEHAVIOUR [None]
  - AMNESIA [None]
  - CARDIAC FAILURE CONGESTIVE [None]
  - CONFUSIONAL STATE [None]
  - HEART VALVE INSUFFICIENCY [None]
  - SLEEP APNOEA SYNDROME [None]
  - THROMBOSIS [None]
  - WHEEZING [None]
